FAERS Safety Report 12683629 (Version 3)
Quarter: 2017Q1

REPORT INFORMATION
  Report Type: Spontaneous
  Country: US (occurrence: US)
  Receive Date: 20160825
  Receipt Date: 20170104
  Transmission Date: 20170428
  Serious: No
  Sender: FDA-Public Use
  Company Number: US-PFIZER INC-2016399117

PATIENT
  Age: 61 Year
  Sex: Female

DRUGS (1)
  1. SUTENT [Suspect]
     Active Substance: SUNITINIB MALATE
     Indication: RENAL CANCER
     Dosage: 50 MG, CYCLIC (DAILY FOR 4 WEEKS ON 2 WEEKS OFF), (QD X 4 WEEKS, 2 WEEKS OF)
     Route: 048
     Dates: start: 20160712

REACTIONS (5)
  - Nausea [Unknown]
  - Stomatitis [Unknown]
  - Diarrhoea [Unknown]
  - Headache [Unknown]
  - Skin lesion [Unknown]

NARRATIVE: CASE EVENT DATE: 20160822
